FAERS Safety Report 7748820-X (Version None)
Quarter: 2011Q3

REPORT INFORMATION
  Report Type: 
  Country: None (occurrence: None)
  Receive Date: 20110914
  Receipt Date: 20100715
  Transmission Date: 20111222
  Serious: No
  Sender: FDA-Public Use
  Company Number: US-BAYER-201028060NA

PATIENT
  Age: 40 Year
  Sex: Female

DRUGS (1)
  1. MIRENA [Suspect]
     Indication: MENORRHAGIA
     Dosage: FREQUENCY CONTINUOUS
     Route: 015
     Dates: start: 20100304

REACTIONS (5)
  - MENSTRUAL DISORDER [None]
  - MEDICAL DEVICE COMPLICATION [None]
  - FATIGUE [None]
  - UTERINE SPASM [None]
  - VAGINAL HAEMORRHAGE [None]
